FAERS Safety Report 6182383-8 (Version None)
Quarter: 2009Q2

REPORT INFORMATION
  Report Type: 
  Country: None (occurrence: None)
  Receive Date: 20090507
  Receipt Date: 20090428
  Transmission Date: 20091009
  Serious: Yes (Other)
  Sender: FDA-Public Use
  Company Number: NL-JNJFOC-20090406988

PATIENT

DRUGS (2)
  1. DAKTARIN [Suspect]
     Route: 065
     Dates: start: 20090427, end: 20090428
  2. DAKTARIN [Suspect]
     Indication: APHTHOUS STOMATITIS
     Route: 065
     Dates: start: 20090427, end: 20090428

REACTIONS (3)
  - ANURIA [None]
  - HYPERSOMNIA [None]
  - INFREQUENT BOWEL MOVEMENTS [None]
